FAERS Safety Report 7966535-X (Version None)
Quarter: 2011Q4

REPORT INFORMATION
  Report Type: 
  Country: None (occurrence: None)
  Receive Date: 20111208
  Receipt Date: 20111118
  Transmission Date: 20120403
  Serious: Yes (Death, Hospitalization)
  Sender: FDA-Public Use
  Company Number: US-ROCHE-1012832

PATIENT
  Sex: Male
  Weight: 102 kg

DRUGS (28)
  1. ASPIRIN [Concomitant]
     Indication: HYPERLIPIDAEMIA
     Route: 048
     Dates: end: 20111111
  2. FAMOTIDINE [Concomitant]
     Indication: GASTROOESOPHAGEAL REFLUX DISEASE
     Route: 048
     Dates: start: 20110422, end: 20111111
  3. METOLAZONE [Concomitant]
     Route: 048
     Dates: end: 20111111
  4. METOPROLOL TARTRATE [Concomitant]
     Route: 048
     Dates: end: 20111111
  5. PIOGLITAZONE [Concomitant]
     Route: 048
     Dates: end: 20111111
  6. HEPARIN [Concomitant]
     Indication: DEEP VEIN THROMBOSIS
     Route: 058
     Dates: start: 20110709, end: 20110715
  7. AVASTIN [Suspect]
     Indication: HEPATIC NEOPLASM MALIGNANT
     Dosage: LAST DOSE: 30 SEP 2011
     Route: 042
     Dates: start: 20110624, end: 20111013
  8. SORAFENIB [Suspect]
     Indication: HEPATIC NEOPLASM MALIGNANT
     Dosage: LAST DOSE: 10 NOV 2011
     Route: 048
     Dates: start: 20111029, end: 20111110
  9. CORTISONE CREAM [Concomitant]
     Route: 061
     Dates: start: 20110707, end: 20111111
  10. LOVENOX [Concomitant]
     Dates: start: 20110716, end: 20111111
  11. NYSTATIN [Concomitant]
     Route: 061
     Dates: end: 20111111
  12. LOTRISONE [Concomitant]
     Indication: FUNGAL INFECTION
     Route: 061
     Dates: start: 20110708, end: 20111111
  13. SPIRONOLACTONE [Concomitant]
     Route: 048
  14. HYDROXIZINE CHLORIDE [Concomitant]
     Route: 048
     Dates: start: 20110331, end: 20111111
  15. MULTIVITAMIN NOS [Concomitant]
     Dates: end: 20111111
  16. KLONOPIN [Concomitant]
     Indication: ANXIETY
     Route: 048
     Dates: start: 20110701, end: 20111111
  17. SODIUM CHLORIDE [Concomitant]
     Indication: DRY EYE
  18. ENOXAPARIN [Concomitant]
     Indication: DEEP VEIN THROMBOSIS
     Route: 058
     Dates: start: 20110716, end: 20111111
  19. BISMUTH [Concomitant]
     Route: 048
     Dates: start: 20111004, end: 20111013
  20. FERROUS SULFATE TAB [Concomitant]
     Indication: ANAEMIA
     Route: 048
     Dates: start: 20110211, end: 20111111
  21. ISOSORBIDE MONONITRATE [Concomitant]
     Indication: CORONARY ARTERY DISEASE
     Route: 048
     Dates: end: 20111111
  22. SIMVASTATIN [Concomitant]
     Route: 048
     Dates: end: 20111111
  23. TEMAZEPAM [Concomitant]
     Route: 048
     Dates: end: 20111111
  24. DOXYCYCLINE [Concomitant]
     Indication: DERMATITIS ACNEIFORM
     Route: 048
     Dates: start: 20110707, end: 20111111
  25. ALPRAZOLAM [Concomitant]
     Indication: ANXIETY
     Dates: start: 20110624, end: 20111111
  26. TARCEVA [Suspect]
     Indication: HEPATIC NEOPLASM MALIGNANT
     Dosage: LAST DOSE: 31 OCT 2011
     Route: 048
     Dates: start: 20110624, end: 20111013
  27. FUROSEMIDE [Concomitant]
     Indication: HYPERTENSION
     Route: 048
     Dates: start: 20110407, end: 20111111
  28. BISMUTH [Concomitant]
     Indication: DIARRHOEA
     Route: 048
     Dates: start: 20110918, end: 20110921

REACTIONS (1)
  - CARDIAC ARREST [None]
